FAERS Safety Report 9426275 (Version 1)
Quarter: 2013Q3

REPORT INFORMATION
  Report Type: Spontaneous
  Country: US (occurrence: US)
  Receive Date: 20130730
  Receipt Date: 20130730
  Transmission Date: 20140515
  Serious: Yes (Other)
  Sender: FDA-Public Use
  Company Number: US-JNJFOC-20130711645

PATIENT
  Age: 63 Year
  Sex: Female
  Weight: 77.11 kg

DRUGS (2)
  1. BENADRYL ALLERGY DYE-FREE SOFT [Suspect]
     Indication: MULTIPLE ALLERGIES
     Dosage: 2 WEEKS
     Route: 048
     Dates: end: 20130717
  2. BENADRYL ALLERGY DYE-FREE SOFT [Suspect]
     Indication: MULTIPLE ALLERGIES
     Route: 048

REACTIONS (1)
  - Dyspnoea [Not Recovered/Not Resolved]
